FAERS Safety Report 25543881 (Version 2)
Quarter: 2025Q4

REPORT INFORMATION
  Report Type: Report from Study
  Country: PH (occurrence: PH)
  Receive Date: 20250711
  Receipt Date: 20251229
  Transmission Date: 20260118
  Serious: Yes (Death)
  Sender: OTSUKA
  Company Number: PH-MMM-Otsuka-JRE90MT5

PATIENT

DRUGS (1)
  1. TOLVAPTAN [Suspect]
     Active Substance: TOLVAPTAN
     Indication: Blood sodium decreased
     Dosage: 0.5 DF, QD (15MG 1/2 TABLET ONCE A DAY AT BREAKFAST)
     Route: 061
     Dates: end: 20250615

REACTIONS (7)
  - Lung disorder [Fatal]
  - Renal disorder [Fatal]
  - Blood sodium decreased [Fatal]
  - Haemoglobin decreased [Fatal]
  - Underdose [Unknown]
  - Wrong technique in product usage process [Unknown]
  - Drug ineffective [Unknown]
